FAERS Safety Report 4525366-3 (Version None)
Quarter: 2004Q4

REPORT INFORMATION
  Report Type: 
  Country: None (occurrence: None)
  Receive Date: 20041112
  Receipt Date: 20040319
  Transmission Date: 20050328
  Serious: Yes (Hospitalization)
  Sender: FDA-Public Use
  Company Number: 200412112US

PATIENT
  Age: 83 Year
  Sex: Male

DRUGS (5)
  1. NILANDRON [Suspect]
     Indication: PROSTATE CANCER
     Dosage: 150 MG QD
     Dates: start: 20040111, end: 20040307
  2. BICALUTAMIDE (CASODEX) [Concomitant]
  3. LEUPRORELIN ACETATE (LUPRON) [Concomitant]
  4. MULTIVITAMIN [Concomitant]
  5. ASPIRIN [Concomitant]

REACTIONS (4)
  - ANOREXIA [None]
  - DYSPNOEA [None]
  - PNEUMONITIS [None]
  - VOMITING [None]
